FAERS Safety Report 19091428 (Version 1)
Quarter: 2021Q2

REPORT INFORMATION
  Report Type: Spontaneous
  Country: US (occurrence: US)
  Receive Date: 20210405
  Receipt Date: 20210405
  Transmission Date: 20210717
  Serious: No
  Sender: FDA-Public Use
  Company Number: US-DRREDDYS-USA/USA/21/0133359

PATIENT
  Age: 16 Year
  Sex: Male

DRUGS (1)
  1. ZENATANE [Suspect]
     Active Substance: ISOTRETINOIN
     Indication: PRODUCT USED FOR UNKNOWN INDICATION
     Dosage: 10/9/2020 12:00:00 AM,11/13/2020 12:00:00 AM,12/15/2020 12:00:00 AM,1/13/2021 12:00:00 AM,2/17/2021
     Route: 048

REACTIONS (1)
  - Visual impairment [Unknown]
